FAERS Safety Report 5777443-7 (Version None)
Quarter: 2008Q2

REPORT INFORMATION
  Report Type: 
  Country: None (occurrence: None)
  Receive Date: 20080616
  Receipt Date: 20080606
  Transmission Date: 20081010
  Serious: Yes (Hospitalization)
  Sender: FDA-Public Use
  Company Number: 2008SP005783

PATIENT
  Sex: Male

DRUGS (1)
  1. PROVENTIL-HFA [Suspect]
     Indication: DRUG USE FOR UNKNOWN INDICATION
     Dosage: PO

REACTIONS (4)
  - DEVICE FAILURE [None]
  - DRUG INEFFECTIVE [None]
  - FEELING ABNORMAL [None]
  - PHARMACEUTICAL PRODUCT COMPLAINT [None]
